FAERS Safety Report 7397667-5 (Version None)
Quarter: 2011Q2

REPORT INFORMATION
  Report Type: 
  Country: None (occurrence: None)
  Receive Date: 20110406
  Receipt Date: 20110325
  Transmission Date: 20111010
  Serious: Yes (Hospitalization)
  Sender: FDA-Public Use
  Company Number: PHHY2011FR24939

PATIENT
  Sex: Female

DRUGS (4)
  1. PACLITAXEL [Suspect]
     Indication: BREAST CANCER
     Dosage: 130 MG, TOTAL
     Route: 041
     Dates: start: 20110124, end: 20110124
  2. ZANTAC [Concomitant]
     Dosage: UNK UKN, UNK
     Dates: start: 20110124, end: 20110124
  3. POLARAMINE [Concomitant]
     Dosage: UNK UKN, UNK
     Dates: start: 20110124, end: 20110124
  4. METHYLPREDNISOLONE [Concomitant]
     Dosage: UNK UKN, UNK
     Dates: start: 20110124, end: 20110124

REACTIONS (4)
  - DYSPNOEA [None]
  - MALAISE [None]
  - ACCELERATED HYPERTENSION [None]
  - SENSE OF OPPRESSION [None]
